APPROVED DRUG PRODUCT: SULF-15
Active Ingredient: SULFACETAMIDE SODIUM
Strength: 15%
Dosage Form/Route: SOLUTION/DROPS;OPHTHALMIC
Application: A089047 | Product #001
Applicant: NOVARTIS PHARMACEUTICALS CORP
Approved: Oct 31, 1995 | RLD: No | RS: No | Type: DISCN